FAERS Safety Report 9475604 (Version 1)
Quarter: 2013Q3

REPORT INFORMATION
  Report Type: Report from Study
  Country: AU (occurrence: AU)
  Receive Date: 20130826
  Receipt Date: 20130826
  Transmission Date: 20140515
  Serious: Yes (Other)
  Sender: FDA-Public Use
  Company Number: PHHY2013AU089627

PATIENT
  Age: 41 Year
  Sex: Male

DRUGS (6)
  1. CLOZAPINE [Suspect]
     Dosage: UNK
  2. ASPIRIN [Concomitant]
     Dosage: UNK
  3. METFORMIN HYDROCHLORIDE [Concomitant]
     Dosage: UNK UKN, UNK
  4. ROSUVASTATIN [Concomitant]
     Dosage: UNK
  5. SITAGLIPTIN [Concomitant]
     Dosage: UNK UKN, UNK
  6. VENLAFAXINE HYDROCHLORIDE [Concomitant]
     Dosage: UNK UKN, UNK

REACTIONS (4)
  - Dyspnoea [Unknown]
  - Chest pain [Unknown]
  - Tachycardia [Unknown]
  - Troponin increased [Unknown]
